FAERS Safety Report 8588465-5 (Version None)
Quarter: 2012Q3

REPORT INFORMATION
  Report Type: 
  Country: None (occurrence: None)
  Receive Date: 20120813
  Receipt Date: 20120803
  Transmission Date: 20120928
  Serious: Yes (Other)
  Sender: FDA-Public Use
  Company Number: BR-JNJFOC-20120803552

PATIENT
  Sex: Female
  Weight: 61 kg

DRUGS (5)
  1. AZATHIOPRINE [Concomitant]
     Indication: CROHN'S DISEASE
     Route: 048
     Dates: start: 20030101
  2. REMICADE [Suspect]
     Indication: CROHN'S DISEASE
     Route: 042
  3. REMICADE [Suspect]
     Route: 042
     Dates: start: 20110301
  4. PREDNISONE TAB [Concomitant]
     Indication: CROHN'S DISEASE
     Route: 065
     Dates: start: 20030101, end: 20111001
  5. REMICADE [Suspect]
     Route: 042
     Dates: start: 20111022, end: 20111001

REACTIONS (6)
  - RESPIRATORY ARREST [None]
  - SUFFOCATION FEELING [None]
  - DRUG INEFFECTIVE [None]
  - INFECTED FISTULA [None]
  - HYPERSENSITIVITY [None]
  - INFUSION RELATED REACTION [None]
